FAERS Safety Report 6677232-5 (Version None)
Quarter: 2010Q2

REPORT INFORMATION
  Report Type: 
  Country: None (occurrence: None)
  Receive Date: 20100412
  Receipt Date: 20100302
  Transmission Date: 20101027
  Serious: Yes (Other)
  Sender: FDA-Public Use
  Company Number: US-SANOFI-AVENTIS-2010SA003821

PATIENT
  Age: 62 Year
  Sex: Male

DRUGS (2)
  1. OPTICLICK [Suspect]
     Route: 058
  2. LANTUS [Suspect]
     Dosage: DOSE:38 UNIT(S)
     Route: 058

REACTIONS (2)
  - DEVICE MALFUNCTION [None]
  - MEMORY IMPAIRMENT [None]
